FAERS Safety Report 4581682-0 (Version None)
Quarter: 2005Q1

REPORT INFORMATION
  Report Type: 
  Country: None (occurrence: None)
  Receive Date: 20050214
  Receipt Date: 20041215
  Transmission Date: 20050727
  Serious: No
  Sender: FDA-Public Use
  Company Number: US-GLAXOSMITHKLINE-A0537466A

PATIENT
  Age: 42 Year
  Sex: Male
  Weight: 96 kg

DRUGS (11)
  1. LAMICTAL [Suspect]
     Dosage: 150MG TWICE PER DAY
     Route: 048
     Dates: start: 20041025
  2. LIPITOR [Concomitant]
     Dosage: 20MG TWICE PER DAY
     Route: 048
  3. PHENYTOIN [Concomitant]
     Dosage: 200MG TWICE PER DAY
  4. BETAMETHASONE [Concomitant]
     Dosage: 1APP THREE TIMES PER DAY
     Route: 061
  5. MICONAZOLE [Concomitant]
     Dosage: 1APP TWICE PER DAY
  6. VITAMIN E CREAM [Concomitant]
     Dosage: 1APP PER DAY
     Route: 061
  7. BISACODYL [Concomitant]
     Dosage: 5MG PER DAY
     Route: 048
  8. METAMUCIL-2 [Concomitant]
     Dosage: 1TBS PER DAY
     Route: 048
  9. UREA CREAM [Concomitant]
     Dosage: 1APP THREE TIMES PER DAY
     Route: 061
  10. TRAZODONE [Concomitant]
     Dosage: 25MG AT NIGHT
     Route: 048
  11. IMITREX [Concomitant]
     Dosage: 6MG AS REQUIRED

REACTIONS (2)
  - INSOMNIA [None]
  - NIGHT SWEATS [None]
